FAERS Safety Report 7601956-6 (Version None)
Quarter: 2011Q3

REPORT INFORMATION
  Report Type: 
  Country: None (occurrence: None)
  Receive Date: 20110711
  Receipt Date: 20110629
  Transmission Date: 20111222
  Serious: Yes (Hospitalization, Other)
  Sender: FDA-Public Use
  Company Number: JP-PFIZER INC-2011102756

PATIENT
  Age: 60 Year
  Sex: Male
  Weight: 55.2 kg

DRUGS (2)
  1. SULFASALAZINE [Suspect]
     Indication: COLITIS
     Dosage: 1000 MG, 2X/DAY
     Route: 048
     Dates: start: 20100416, end: 20100503
  2. MESALAZINE [Suspect]
     Indication: COLITIS
     Dosage: 1000 MG, 2X/DAY
     Route: 048
     Dates: start: 20100407, end: 20100415

REACTIONS (2)
  - STEVENS-JOHNSON SYNDROME [None]
  - LIVER DISORDER [None]
